FAERS Safety Report 25148444 (Version 2)
Quarter: 2025Q3

REPORT INFORMATION
  Report Type: Spontaneous
  Country: EU (occurrence: EU)
  Receive Date: 20250402
  Receipt Date: 20250703
  Transmission Date: 20251021
  Serious: Yes (Death)
  Sender: ROCHE
  Company Number: EU-ROCHE-10000239479

PATIENT
  Age: 59 Year
  Sex: Male

DRUGS (1)
  1. GLOFITAMAB [Suspect]
     Active Substance: GLOFITAMAB
     Indication: Diffuse large B-cell lymphoma refractory
     Route: 065

REACTIONS (1)
  - Death [Fatal]

NARRATIVE: CASE EVENT DATE: 20250227
